FAERS Safety Report 8904039 (Version 1)
Quarter: 2012Q4

REPORT INFORMATION
  Report Type: 
  Country: CO (occurrence: CO)
  Receive Date: 20121112
  Receipt Date: 20121112
  Transmission Date: 20130627
  Serious: Yes (Other)
  Sender: FDA-Public Use
  Company Number: CO-BRISTOL-MYERS SQUIBB COMPANY-17088196

PATIENT

DRUGS (2)
  1. DASATINIB [Suspect]
  2. NILOTINIB [Suspect]

REACTIONS (1)
  - Nephrotic syndrome [Unknown]
